FAERS Safety Report 7734080-2 (Version None)
Quarter: 2011Q3

REPORT INFORMATION
  Report Type: 
  Country: None (occurrence: None)
  Receive Date: 20110901
  Receipt Date: 20110817
  Transmission Date: 20111222
  Serious: Yes (Other)
  Sender: FDA-Public Use
  Company Number: US-DEXPHARM-20111067

PATIENT
  Sex: Male
  Weight: 89 kg

DRUGS (2)
  1. LISINOPRIL [Concomitant]
  2. OMEPRAZOLE [Suspect]
     Indication: GASTRIC PH DECREASED
     Dosage: 20 MG ONCE A DAY, ORAL
     Route: 048
     Dates: start: 20090101, end: 20110601

REACTIONS (20)
  - DIZZINESS [None]
  - ABDOMINAL PAIN [None]
  - PAIN [None]
  - VERTIGO [None]
  - FATIGUE [None]
  - ANXIETY [None]
  - ABDOMINAL DISCOMFORT [None]
  - DYSPNOEA [None]
  - HEADACHE [None]
  - ALTERED VISUAL DEPTH PERCEPTION [None]
  - DECREASED APPETITE [None]
  - FEAR [None]
  - STRESS [None]
  - CHEST PAIN [None]
  - VOMITING [None]
  - MUSCLE TIGHTNESS [None]
  - VISION BLURRED [None]
  - MUSCLE SPASMS [None]
  - ARTHRALGIA [None]
  - PALPITATIONS [None]
